FAERS Safety Report 6428711-7 (Version None)
Quarter: 2009Q4

REPORT INFORMATION
  Report Type: 
  Country: None (occurrence: None)
  Receive Date: 20091027
  Receipt Date: 20091013
  Transmission Date: 20100525
  Serious: Yes (Death, Other)
  Sender: FDA-Public Use
  Company Number: 2007314442

PATIENT
  Age: 5 Month
  Sex: Female

DRUGS (2)
  1. PSEUDOEPHEDRINE HCL [Suspect]
  2. BROMPHENIRAMINE [Suspect]

REACTIONS (7)
  - CARDIOMEGALY [None]
  - DOUBLE OUTLET RIGHT VENTRICLE [None]
  - DRUG TOXICITY [None]
  - HEART DISEASE CONGENITAL [None]
  - PULMONARY VALVE STENOSIS [None]
  - VENTRICULAR SEPTAL DEFECT [None]
  - VOMITING [None]
